FAERS Safety Report 5509163-8 (Version None)
Quarter: 2007Q4

REPORT INFORMATION
  Report Type: 
  Country: None (occurrence: None)
  Receive Date: 20071031
  Receipt Date: 20070629
  Transmission Date: 20080405
  Serious: No
  Sender: FDA-Public Use
  Company Number: 2007PV033079

PATIENT
  Age: 62 Year
  Sex: Female
  Weight: 117.9352 kg

DRUGS (14)
  1. SYMLIN [Suspect]
     Indication: TYPE 1 DIABETES MELLITUS
     Dosage: 120 MCG; TID; SC; 60 MCG; TID; SD
     Route: 058
     Dates: start: 20070101, end: 20070301
  2. SYMLIN [Suspect]
     Indication: TYPE 1 DIABETES MELLITUS
     Dosage: 120 MCG; TID; SC; 60 MCG; TID; SD
     Route: 058
     Dates: start: 20070301
  3. NOVOLOG [Concomitant]
  4. LANTUS [Concomitant]
  5. FISH OIL [Concomitant]
  6. VYTORIN [Concomitant]
  7. COUMADIN [Concomitant]
  8. METOPROLOL [Concomitant]
  9. CARTIA XT [Concomitant]
  10. OMEPRAZOLE [Concomitant]
  11. CALCIUM MAGNESIUM ZINC [Concomitant]
  12. POTASSIUM CHLORIDE [Concomitant]
  13. FUROSEMIDE [Concomitant]
  14. SINGULAIR [Concomitant]

REACTIONS (4)
  - CONTUSION [None]
  - DIZZINESS [None]
  - MOOD SWINGS [None]
  - PAIN IN EXTREMITY [None]
